FAERS Safety Report 7987660-3 (Version None)
Quarter: 2011Q4

REPORT INFORMATION
  Report Type: 
  Country: None (occurrence: None)
  Receive Date: 20111216
  Receipt Date: 20111207
  Transmission Date: 20120403
  Serious: Yes (Other)
  Sender: FDA-Public Use
  Company Number: US-ABBOTT-11P-163-0878406-00

PATIENT
  Age: 27 Year
  Sex: Male

DRUGS (8)
  1. HUMIRA [Suspect]
     Indication: CROHN'S DISEASE
     Dates: start: 20111010
  2. AZATHIOPRINE [Concomitant]
     Indication: PRODUCT USED FOR UNKNOWN INDICATION
  3. KEPPRA [Concomitant]
     Indication: CONVULSION
  4. PREDNISONE [Concomitant]
     Indication: PRODUCT USED FOR UNKNOWN INDICATION
  5. METHADONE HCL [Concomitant]
     Indication: ABDOMINAL PAIN UPPER
  6. OXYCODONE HCL [Concomitant]
     Indication: PRODUCT USED FOR UNKNOWN INDICATION
     Dosage: 8 TIMES DAILY AS REQUIRED
  7. PROMETHAZINE [Concomitant]
     Indication: NAUSEA
  8. XANAX [Concomitant]
     Indication: ANXIETY

REACTIONS (10)
  - JOINT SWELLING [None]
  - ABDOMINAL PAIN UPPER [None]
  - VOMITING [None]
  - CONDITION AGGRAVATED [None]
  - ROAD TRAFFIC ACCIDENT [None]
  - HAEMATOCHEZIA [None]
  - NAUSEA [None]
  - BODY TEMPERATURE INCREASED [None]
  - CONVULSION [None]
  - DRUG INEFFECTIVE [None]
